FAERS Safety Report 4939275-9 (Version None)
Quarter: 2006Q1

REPORT INFORMATION
  Report Type: 
  Country: None (occurrence: None)
  Receive Date: 20060306
  Receipt Date: 20060216
  Transmission Date: 20060701
  Serious: Yes (Other)
  Sender: FDA-Public Use
  Company Number: AU200602004670

PATIENT
  Age: 19 Year
  Sex: Male

DRUGS (2)
  1. PROZAC [Suspect]
     Indication: DEPRESSION
     Dosage: SEE IMAGE
     Dates: start: 20040216, end: 20060119
  2. ZYPREXA [Suspect]
     Dates: start: 20040219, end: 20060119

REACTIONS (11)
  - AGGRESSION [None]
  - AKATHISIA [None]
  - ANGER [None]
  - ANXIETY [None]
  - EUPHORIC MOOD [None]
  - HOMICIDAL IDEATION [None]
  - INSOMNIA [None]
  - INTENTIONAL SELF-INJURY [None]
  - PSYCHIATRIC SYMPTOM [None]
  - SUICIDAL IDEATION [None]
  - WEIGHT INCREASED [None]
